APPROVED DRUG PRODUCT: GEMFIBROZIL
Active Ingredient: GEMFIBROZIL
Strength: 600MG
Dosage Form/Route: TABLET;ORAL
Application: A074156 | Product #001
Applicant: WATSON LABORATORIES INC
Approved: Oct 24, 1994 | RLD: No | RS: No | Type: DISCN